FAERS Safety Report 7730237-5 (Version None)
Quarter: 2011Q3

REPORT INFORMATION
  Report Type: 
  Country: None (occurrence: None)
  Receive Date: 20110906
  Receipt Date: 20110830
  Transmission Date: 20111222
  Serious: Yes (Other)
  Sender: FDA-Public Use
  Company Number: US-JNJFOC-20110900960

PATIENT
  Sex: Female
  Weight: 68.04 kg

DRUGS (4)
  1. CYCLOSPORINE [Concomitant]
     Indication: ECZEMA
     Route: 048
  2. LEVAQUIN [Suspect]
     Indication: GINGIVAL INFECTION
     Route: 048
     Dates: start: 20110819, end: 20110826
  3. SYNTHROID [Concomitant]
     Indication: THYROID DISORDER
     Route: 048
  4. LEXAPRO [Concomitant]
     Indication: DEPRESSION
     Route: 048

REACTIONS (5)
  - SCIATICA [None]
  - MUSCULOSKELETAL PAIN [None]
  - HAND FRACTURE [None]
  - ARTHRALGIA [None]
  - TENDON PAIN [None]
